FAERS Safety Report 12343150 (Version 1)
Quarter: 2016Q2

REPORT INFORMATION
  Report Type: Spontaneous
  Country: TR (occurrence: TR)
  Receive Date: 20160506
  Receipt Date: 20160506
  Transmission Date: 20160815
  Serious: Yes (Hospitalization)
  Sender: FDA-Public Use
  Company Number: TR-MYLANLABS-2016M1018923

PATIENT

DRUGS (1)
  1. DOXEPIN [Suspect]
     Active Substance: DOXEPIN
     Indication: PRURITUS GENERALISED
     Route: 065

REACTIONS (2)
  - Pemphigoid [Recovering/Resolving]
  - Drug eruption [Recovering/Resolving]
